FAERS Safety Report 7533795-9 (Version None)
Quarter: 2011Q2

REPORT INFORMATION
  Report Type: 
  Country: None (occurrence: None)
  Receive Date: 20110608
  Receipt Date: 20110601
  Transmission Date: 20111010
  Serious: Yes (Hospitalization)
  Sender: FDA-Public Use
  Company Number: US-US-EMD SERONO, INC.-7061240

PATIENT
  Sex: Female

DRUGS (3)
  1. REBIF [Suspect]
     Indication: PRODUCT USED FOR UNKNOWN INDICATION
     Route: 058
     Dates: start: 20110409
  2. BOTOX [Concomitant]
     Dates: start: 20110501, end: 20110501
  3. MOTRIN [Concomitant]
     Indication: PREMEDICATION

REACTIONS (5)
  - TREMOR [None]
  - SENSATION OF HEAVINESS [None]
  - HEADACHE [None]
  - VISION BLURRED [None]
  - EYE PAIN [None]
